FAERS Safety Report 5391045-6 (Version None)
Quarter: 2007Q3

REPORT INFORMATION
  Report Type: 
  Country: None (occurrence: None)
  Receive Date: 20070719
  Receipt Date: 20070713
  Transmission Date: 20080115
  Serious: Yes (Hospitalization, Other)
  Sender: FDA-Public Use
  Company Number: FR-AVENTIS-200712288FR

PATIENT
  Age: 25 Year
  Sex: Female

DRUGS (9)
  1. FLAGYL [Suspect]
     Route: 042
     Dates: start: 20070604, end: 20070606
  2. INIPOMP                            /01263201/ [Suspect]
     Route: 048
     Dates: start: 20070602, end: 20070606
  3. NUBAIN                             /00534802/ [Suspect]
     Indication: PAIN
     Route: 042
     Dates: start: 20070602, end: 20070606
  4. ROCEPHIN [Suspect]
     Dates: start: 20070604, end: 20070606
  5. PERFALGAN [Concomitant]
     Route: 042
     Dates: start: 20070602
  6. SPASFON                            /00934601/ [Concomitant]
     Route: 042
     Dates: start: 20070602
  7. PRIMPERAN                          /00041901/ [Concomitant]
     Indication: NAUSEA
     Route: 042
     Dates: start: 20070604, end: 20070604
  8. PROFENID [Concomitant]
  9. OMEPRAZOLE [Concomitant]
     Route: 048
     Dates: start: 20070604, end: 20070604

REACTIONS (2)
  - LEUKOPENIA [None]
  - NEUTROPENIA [None]
